FAERS Safety Report 20236681 (Version 3)
Quarter: 2022Q2

REPORT INFORMATION
  Report Type: Spontaneous
  Country: ES (occurrence: ES)
  Receive Date: 20211228
  Receipt Date: 20220428
  Transmission Date: 20220720
  Serious: Yes (Other)
  Sender: FDA-Public Use
  Company Number: ES-BoehringerIngelheim-2021-BI-145583

PATIENT
  Age: 45 Year
  Sex: Male

DRUGS (4)
  1. NINTEDANIB [Suspect]
     Active Substance: NINTEDANIB
     Indication: Pulmonary fibrosis
     Dates: start: 20190318
  2. NINTEDANIB [Suspect]
     Active Substance: NINTEDANIB
     Indication: Interstitial lung disease
  3. RITUXIMAB [Concomitant]
     Active Substance: RITUXIMAB
     Indication: Pulmonary fibrosis
     Dates: start: 201806
  4. RITUXIMAB [Concomitant]
     Active Substance: RITUXIMAB
     Indication: Interstitial lung disease

REACTIONS (1)
  - Idiopathic pulmonary fibrosis [Unknown]
